FAERS Safety Report 25601291 (Version 3)
Quarter: 2025Q3

REPORT INFORMATION
  Report Type: Spontaneous
  Country: EU (occurrence: EU)
  Receive Date: 20250724
  Receipt Date: 20250730
  Transmission Date: 20251021
  Serious: No
  Sender: ALEXION PHARMACEUTICALS
  Company Number: EU-AstraZeneca-CH-00915610AP

PATIENT
  Sex: Male

DRUGS (1)
  1. BEVESPI AEROSPHERE [Suspect]
     Active Substance: FORMOTEROL FUMARATE\GLYCOPYRROLATE
     Dosage: 7.2 MICROGRAM, BID

REACTIONS (4)
  - Mouth ulceration [Unknown]
  - Oral mucosal blistering [Unknown]
  - Device defective [Unknown]
  - Intentional dose omission [Unknown]
